FAERS Safety Report 22095939 (Version 1)
Quarter: 2023Q1

REPORT INFORMATION
  Report Type: Spontaneous
  Country: US (occurrence: US)
  Receive Date: 20230315
  Receipt Date: 20230315
  Transmission Date: 20230418
  Serious: No
  Sender: FDA-Public Use
  Company Number: US-Teikoku Pharma USA-TPU2023-00096

PATIENT
  Sex: Female

DRUGS (4)
  1. LIDOCAINE PATCH [Suspect]
     Active Substance: LIDOCAINE
     Indication: Arthralgia
     Dosage: ONE PATCH TO EACH KNEE, AND BACK
     Route: 061
  2. LIDOCAINE PATCH [Suspect]
     Active Substance: LIDOCAINE
     Indication: Back pain
  3. LIDODERM [Suspect]
     Active Substance: LIDOCAINE
     Indication: Arthralgia
     Dosage: ONE PATCH TO EACH KNEE, AND BACK
     Route: 061
  4. LIDODERM [Suspect]
     Active Substance: LIDOCAINE
     Indication: Back pain

REACTIONS (2)
  - Application site pruritus [Recovered/Resolved]
  - Application site urticaria [Recovered/Resolved]
